FAERS Safety Report 10643340 (Version 1)
Quarter: 2014Q4

REPORT INFORMATION
  Report Type: Spontaneous
  Country: US (occurrence: None)
  Receive Date: 20141128
  Receipt Date: 20141128
  Transmission Date: 20150529
  Serious: Yes (Disabling)
  Sender: FDA-Public Use
  Company Number: PHEH2014US015734

PATIENT
  Age: 53 Year
  Sex: Female
  Weight: 63.5 kg

DRUGS (1)
  1. TERBINAFINE [Suspect]
     Active Substance: TERBINAFINE

REACTIONS (2)
  - Dysgeusia [None]
  - Ageusia [None]

NARRATIVE: CASE EVENT DATE: 20140715
